FAERS Safety Report 12880973 (Version 1)
Quarter: 2016Q4

REPORT INFORMATION
  Report Type: Spontaneous
  Country: US (occurrence: US)
  Receive Date: 20161025
  Receipt Date: 20161025
  Transmission Date: 20170207
  Serious: No
  Sender: FDA-Public Use
  Company Number: US-JNJFOC-20160915901

PATIENT
  Sex: Male
  Weight: 92.53 kg

DRUGS (3)
  1. RISPERDAL [Suspect]
     Active Substance: RISPERIDONE
     Indication: SCHIZOPHRENIA
     Dosage: 4 MG IN THE MORNING AND 4 MG AT NIGHT
     Route: 048
     Dates: start: 2001
  2. RISPERIDONE. [Suspect]
     Active Substance: RISPERIDONE
     Indication: SCHIZOPHRENIA
     Dosage: 4 MG IN THE MORNING AND 4 MG AT NIGHT
     Route: 048
     Dates: start: 2001
  3. RISPERDAL CONSTA [Suspect]
     Active Substance: RISPERIDONE
     Indication: SCHIZOPHRENIA
     Route: 030
     Dates: end: 2013

REACTIONS (3)
  - Breast enlargement [Not Recovered/Not Resolved]
  - Incorrect dose administered [Unknown]
  - Amnesia [Not Recovered/Not Resolved]

NARRATIVE: CASE EVENT DATE: 2001
